FAERS Safety Report 5819023-0 (Version None)
Quarter: 2008Q3

REPORT INFORMATION
  Report Type: 
  Country: None (occurrence: None)
  Receive Date: 20080721
  Receipt Date: 20080721
  Transmission Date: 20090109
  Serious: Yes (Other)
  Sender: FDA-Public Use
  Company Number: None

PATIENT
  Sex: Male

DRUGS (1)
  1. PHENERGAN [Suspect]
     Dosage: 25MG IV
     Route: 042

REACTIONS (5)
  - BLOOD GASES ABNORMAL [None]
  - BLOOD PRESSURE DIASTOLIC DECREASED [None]
  - DYSTONIA [None]
  - MENTAL STATUS CHANGES [None]
  - MUSCULOSKELETAL STIFFNESS [None]
